FAERS Safety Report 7860372-2 (Version None)
Quarter: 2011Q4

REPORT INFORMATION
  Report Type: 
  Country: None (occurrence: None)
  Receive Date: 20111027
  Receipt Date: 20111018
  Transmission Date: 20120403
  Serious: Yes (Death, Hospitalization)
  Sender: FDA-Public Use
  Company Number: PHHY2011CO92138

PATIENT
  Sex: Female

DRUGS (5)
  1. AMITRIPTYLINE HCL [Concomitant]
  2. TRAMADOL HCL [Concomitant]
  3. WINADEINE F [Concomitant]
  4. TASIGNA [Suspect]
     Indication: CHRONIC MYELOID LEUKAEMIA
     Dosage: 200 MG, DAILY
     Route: 048
  5. ACETAMINOPHEN [Concomitant]

REACTIONS (2)
  - NEOPLASM MALIGNANT [None]
  - NEOPLASM PROGRESSION [None]
